FAERS Safety Report 25723011 (Version 1)
Quarter: 2025Q3

REPORT INFORMATION
  Report Type: Spontaneous
  Country: US (occurrence: US)
  Receive Date: 20250825
  Receipt Date: 20250825
  Transmission Date: 20251021
  Serious: No
  Sender: MERCK SHARP & DOHME LLC
  Company Number: US-009507513-2320791

PATIENT
  Sex: Male
  Weight: 63.503 kg

DRUGS (5)
  1. PEMBROLIZUMAB [Suspect]
     Active Substance: PEMBROLIZUMAB
     Indication: Renal cell carcinoma
  2. LENVIMA [Suspect]
     Active Substance: LENVATINIB
     Indication: Renal cell carcinoma
  3. MINERALS\VITAMINS [Concomitant]
     Active Substance: MINERALS\VITAMINS
  4. ATORVASTATIN [Concomitant]
     Active Substance: ATORVASTATIN
  5. Metformin 1000 mg tablet [Concomitant]

REACTIONS (5)
  - Dry skin [Recovering/Resolving]
  - Sleep disorder [Recovering/Resolving]
  - Activities of daily living decreased [Recovering/Resolving]
  - Product use in unapproved indication [Recovering/Resolving]
  - Rash [Recovering/Resolving]
